FAERS Safety Report 8643508 (Version 2)
Quarter: 2012Q4

REPORT INFORMATION
  Report Type: Report from Study
  Country: FR (occurrence: FR)
  Receive Date: 20120629
  Receipt Date: 20121005
  Transmission Date: 20130627
  Serious: Yes (Hospitalization)
  Sender: FDA-Public Use
  Company Number: FR-ASTELLAS-2012US005726

PATIENT
  Age: 73 Year
  Sex: Male
  Weight: 80 kg

DRUGS (3)
  1. ERLOTINIB TABLET [Suspect]
     Indication: MYELODYSPLASTIC SYNDROME
     Dosage: 150 mg, UID/QD
     Route: 048
     Dates: start: 20120412, end: 20120531
  2. LOVENOX [Concomitant]
     Indication: PRODUCT USED FOR UNKNOWN INDICATION
     Dosage: 6000 IU, Unknown/D
     Route: 058
     Dates: start: 20120510
  3. ARANESP [Concomitant]
     Indication: PRODUCT USED FOR UNKNOWN INDICATION
     Dosage: 300 mg, UID/QD
     Route: 065
     Dates: start: 20120412

REACTIONS (3)
  - Off label use [Unknown]
  - Haematotoxicity [Not Recovered/Not Resolved]
  - Febrile bone marrow aplasia [Recovered/Resolved]
